FAERS Safety Report 4596312-1 (Version None)
Quarter: 2005Q1

REPORT INFORMATION
  Report Type: 
  Country: None (occurrence: None)
  Receive Date: 20050302
  Receipt Date: 20050222
  Transmission Date: 20050727
  Serious: Yes (Life-Threatening, Hospitalization)
  Sender: FDA-Public Use
  Company Number: US-MERCK-0502USA02827

PATIENT
  Age: 72 Year
  Sex: Female

DRUGS (9)
  1. VIOXX [Suspect]
     Indication: ARTHRITIS
     Route: 048
     Dates: start: 20010101
  2. TOPROL-XL [Concomitant]
     Route: 065
  3. LENOXIN [Concomitant]
     Route: 065
  4. SYNTHROID [Concomitant]
     Route: 065
  5. LIPITOR [Concomitant]
     Route: 065
  6. AVANDAMET [Concomitant]
     Route: 065
  7. PREVACID [Concomitant]
     Route: 065
  8. COUMADIN [Concomitant]
     Route: 065
  9. AVAPRO [Concomitant]
     Route: 065

REACTIONS (2)
  - CHEST DISCOMFORT [None]
  - CHEST PAIN [None]
